FAERS Safety Report 18182320 (Version 1)
Quarter: 2020Q3

REPORT INFORMATION
  Report Type: Report from Study
  Country: IT (occurrence: IT)
  Receive Date: 20200821
  Receipt Date: 20200821
  Transmission Date: 20201103
  Serious: Yes (Hospitalization)
  Sender: FDA-Public Use
  Company Number: IT-MYLANLABS-2020M1072722

PATIENT
  Age: 58 Year
  Sex: Male

DRUGS (3)
  1. TOCILIZUMAB. [Concomitant]
     Active Substance: TOCILIZUMAB
     Indication: COVID-19 PNEUMONIA
     Dosage: 8 MILLIGRAM/KILOGRAM TOTAL DOSE 600MG/REPEATED DOSE OF TOCILIZUMAB AFTER 12 HOURS.
     Route: 065
     Dates: start: 20200313
  2. RAMIPRIL. [Concomitant]
     Active Substance: RAMIPRIL
     Indication: HYPERTENSION
     Dosage: UNK
     Route: 065
  3. CASPOFUNGIN [Suspect]
     Active Substance: CASPOFUNGIN
     Indication: SYSTEMIC CANDIDA
     Dosage: UNK
     Route: 065
     Dates: start: 2020

REACTIONS (1)
  - Drug ineffective [Unknown]

NARRATIVE: CASE EVENT DATE: 2020
